FAERS Safety Report 9306149 (Version 1)
Quarter: 2013Q2

REPORT INFORMATION
  Report Type: Report from Study
  Country: CA (occurrence: CA)
  Receive Date: 20130523
  Receipt Date: 20130523
  Transmission Date: 20140414
  Serious: Yes (Other)
  Sender: FDA-Public Use
  Company Number: CA-JNJFOC-20130513601

PATIENT
  Age: 58 Year
  Sex: Female
  Weight: 64 kg

DRUGS (13)
  1. REMICADE [Suspect]
     Indication: RHEUMATOID ARTHRITIS
     Dosage: 51ST INFUSION
     Route: 042
     Dates: start: 20130513
  2. REMICADE [Suspect]
     Indication: RHEUMATOID ARTHRITIS
     Route: 042
     Dates: start: 20050614
  3. CT SCAN DYE [Suspect]
     Indication: COMPUTERISED TOMOGRAM
     Route: 065
     Dates: start: 201305
  4. TYLENOL COUGH [Concomitant]
     Dosage: PRN
     Route: 065
  5. ARAVA [Concomitant]
     Indication: RHEUMATOID ARTHRITIS
     Route: 048
  6. DIDROCAL [Concomitant]
     Route: 065
  7. ELTROXIN [Concomitant]
     Route: 065
  8. OXYCODONE [Concomitant]
     Indication: PAIN
     Route: 065
  9. MULTIVITAMINS [Concomitant]
     Route: 065
  10. VITAMIN D [Concomitant]
     Route: 065
  11. VITAMIN E (TOCOPHERYL ACETATE) [Concomitant]
     Route: 065
  12. CALCIUM [Concomitant]
     Route: 065
  13. ACETYLSALICYLIC ACID [Concomitant]
     Dosage: LOW DOSE
     Route: 065

REACTIONS (8)
  - Road traffic accident [Recovering/Resolving]
  - Heart rate irregular [Recovering/Resolving]
  - Chest discomfort [Recovering/Resolving]
  - Fatigue [Recovering/Resolving]
  - Feeling abnormal [Recovering/Resolving]
  - Arthralgia [Not Recovered/Not Resolved]
  - Pain [Not Recovered/Not Resolved]
  - Hypoaesthesia [Recovering/Resolving]
